FAERS Safety Report 8738299 (Version 2)
Quarter: 2013Q4

REPORT INFORMATION
  Report Type: Spontaneous
  Country: US (occurrence: US)
  Receive Date: 20120823
  Receipt Date: 20131101
  Transmission Date: 20140711
  Serious: No
  Sender: FDA-Public Use
  Company Number: US-009507513-1208USA000270

PATIENT
  Sex: Female
  Weight: 61.68 kg

DRUGS (5)
  1. VICTRELIS [Suspect]
     Dosage: 800 MG, TID
     Route: 048
  2. PEG-INTRON [Concomitant]
     Dosage: 120 MICROGRAM, UNK
     Route: 058
  3. CELEXA [Concomitant]
     Dosage: 40 MG, UNK
     Route: 048
  4. RIBAPAK [Concomitant]
     Dosage: 800 PAK PER DAY
     Route: 048
  5. MILK THISTLE [Concomitant]
     Dosage: UNK
     Route: 048

REACTIONS (3)
  - Fatigue [Unknown]
  - Influenza like illness [Unknown]
  - Pruritus [Unknown]
